FAERS Safety Report 8600426-6 (Version None)
Quarter: 2012Q3

REPORT INFORMATION
  Report Type: 
  Country: None (occurrence: None)
  Receive Date: 20120808
  Receipt Date: 20120808
  Transmission Date: 20120928
  Serious: Yes (Life-Threatening, Hospitalization, Disabling, Other)
  Sender: FDA-Public Use
  Company Number: None

PATIENT
  Age: 81 Year
  Sex: Male
  Weight: 77.1115 kg

DRUGS (10)
  1. OXYGEN [Concomitant]
  2. LEVOTHYROXINE SODIUM [Concomitant]
  3. PRIMATENE MIST [Suspect]
     Indication: DYSPNOEA
     Dosage: INHALE ONCE 1 HR MOUTH AFTEROON + THAT NIGHT
     Route: 055
     Dates: start: 20110725
  4. SPIRIVA [Concomitant]
  5. METOPROLOL SUCCINATE [Concomitant]
  6. VITAMIN B-12 [Concomitant]
  7. PRADAXA [Concomitant]
  8. MELATONIN [Concomitant]
  9. MULTI-VITAMIN [Concomitant]
  10. NAC - N-ACETYL-L-CYSTEINE [Concomitant]

REACTIONS (3)
  - LUNG DISORDER [None]
  - DYSPNOEA [None]
  - OXYGEN SATURATION DECREASED [None]
